FAERS Safety Report 13103214 (Version 1)
Quarter: 2017Q1

REPORT INFORMATION
  Report Type: Report from Study
  Country: US (occurrence: US)
  Receive Date: 20170110
  Receipt Date: 20170110
  Transmission Date: 20170428
  Serious: No
  Sender: FDA-Public Use
  Company Number: US-009507513-1612USA014631

PATIENT
  Age: 53 Year
  Sex: Female

DRUGS (1)
  1. KEYTRUDA [Suspect]
     Active Substance: PEMBROLIZUMAB
     Indication: OVARIAN NEOPLASM
     Dosage: UNK
     Route: 065
     Dates: start: 201608, end: 20161222

REACTIONS (2)
  - Palpitations [Unknown]
  - Product use issue [Unknown]

NARRATIVE: CASE EVENT DATE: 201608
